FAERS Safety Report 4299150-2 (Version None)
Quarter: 2004Q1

REPORT INFORMATION
  Report Type: 
  Country: None (occurrence: None)
  Receive Date: 20040217
  Receipt Date: 20040217
  Transmission Date: 20041129
  Serious: No
  Sender: FDA-Public Use
  Company Number: None

PATIENT
  Age: 57 Year
  Sex: Male
  Weight: 89 kg

DRUGS (2)
  1. SODIUM IODIDE SOLUTION 159 MCI 10 ML CARDINAL HEALTH PHARMACY MADISON [Suspect]
     Indication: RADIOACTIVE IODINE THERAPY
     Dosage: 150 MCI 1 ORAL
     Route: 048
     Dates: start: 20040210, end: 20040210
  2. SODIUM IODIDE SOLUTION 159 MCI 10 ML CARDINAL HEALTH PHARMACY MADISON [Suspect]
     Indication: THYROID GLAND CANCER
     Dosage: 150 MCI 1 ORAL
     Route: 048
     Dates: start: 20040210, end: 20040210

REACTIONS (1)
  - PHARMACEUTICAL PRODUCT COMPLAINT [None]
